FAERS Safety Report 6452680-7 (Version None)
Quarter: 2009Q4

REPORT INFORMATION
  Report Type: 
  Country: None (occurrence: None)
  Receive Date: 20091124
  Receipt Date: 20091120
  Transmission Date: 20100525
  Serious: Yes (Other)
  Sender: FDA-Public Use
  Company Number: US-ALLERGAN-0916209US

PATIENT
  Age: 98 Year
  Sex: Female

DRUGS (9)
  1. RESTASIS [Suspect]
     Indication: DRY EYE
     Dosage: 1 GTT, BID
     Dates: start: 20091103
  2. NORVASC [Concomitant]
  3. LASIX [Concomitant]
  4. POTASSIUM CHLORIDE [Concomitant]
     Indication: SUPPLEMENTATION THERAPY
  5. SYNTHROID [Concomitant]
     Indication: HYPOTHYROIDISM
  6. MULTI-VITAMIN [Concomitant]
  7. ADICAN [Concomitant]
  8. NITROGLYN 2% OINTMENT [Concomitant]
  9. KEPPRA [Concomitant]
     Indication: CONVULSION

REACTIONS (1)
  - BLOOD PRESSURE INCREASED [None]
